FAERS Safety Report 25421770 (Version 2)
Quarter: 2025Q4

REPORT INFORMATION
  Report Type: Spontaneous
  Country: CA (occurrence: CA)
  Receive Date: 20250611
  Receipt Date: 20251206
  Transmission Date: 20260117
  Serious: Yes (Other)
  Sender: CELLTRION
  Company Number: CA-CELLTRION INC.-2025CA017974

PATIENT

DRUGS (1)
  1. STEQEYMA [Suspect]
     Active Substance: USTEKINUMAB-STBA
     Indication: Crohn^s disease
     Dosage: 90MG EVERY 4 WEEKS (STOP DATE: UNK-2025)/  STEQEYMA SINGLE-USE PREFILLED SYRINGE 1 EVERY 4 WEEKS
     Route: 058
     Dates: start: 202501

REACTIONS (2)
  - Surgery [Unknown]
  - Intentional product use issue [Unknown]
